FAERS Safety Report 11436770 (Version 14)
Quarter: 2016Q3

REPORT INFORMATION
  Report Type: Report from Study
  Country: US (occurrence: US)
  Receive Date: 20150831
  Receipt Date: 20160804
  Transmission Date: 20161109
  Serious: Yes (Other)
  Sender: FDA-Public Use
  Company Number: US-B.I. PHARMACEUTICALS,INC./RIDGEFIELD-2015-BI-46697BP

PATIENT
  Age: 83 Year
  Sex: Female
  Weight: 58.97 kg

DRUGS (6)
  1. OFEV [Suspect]
     Active Substance: NINTEDANIB
     Dosage: 300 MG
     Route: 048
     Dates: start: 20150728
  2. ELIQUIS [Concomitant]
     Active Substance: APIXABAN
     Indication: PRODUCT USED FOR UNKNOWN INDICATION
     Route: 065
  3. OFEV [Suspect]
     Active Substance: NINTEDANIB
     Dosage: 100 MG
     Route: 065
  4. OFEV [Suspect]
     Active Substance: NINTEDANIB
     Dosage: 150 MG
     Route: 048
  5. OFEV [Suspect]
     Active Substance: NINTEDANIB
     Indication: IDIOPATHIC PULMONARY FIBROSIS
     Dosage: 200 MG
     Route: 048
     Dates: start: 20150720
  6. OFEV [Suspect]
     Active Substance: NINTEDANIB
     Dosage: 200 MG
     Route: 048
     Dates: start: 201601

REACTIONS (21)
  - Nausea [Unknown]
  - Cough [Unknown]
  - Feeling abnormal [Unknown]
  - Gastric disorder [Unknown]
  - Fatigue [Unknown]
  - Productive cough [Unknown]
  - Visual acuity reduced [Unknown]
  - Asthenia [Unknown]
  - Thyroid disorder [Unknown]
  - Colon cancer recurrent [Unknown]
  - Breast cancer recurrent [Unknown]
  - Abdominal pain upper [Unknown]
  - Decreased appetite [Unknown]
  - Malaise [Unknown]
  - Dyspnoea exertional [Unknown]
  - Contusion [Unknown]
  - Nausea [Recovered/Resolved]
  - Chest pain [Unknown]
  - Colon operation [Unknown]
  - Diarrhoea [Unknown]
  - Dry eye [Unknown]

NARRATIVE: CASE EVENT DATE: 20150804
